FAERS Safety Report 10109460 (Version 1)
Quarter: 2014Q2

REPORT INFORMATION
  Report Type: Spontaneous
  Country: US (occurrence: None)
  Receive Date: 20140424
  Receipt Date: 20140424
  Transmission Date: 20141212
  Serious: No
  Sender: FDA-Public Use
  Company Number: None

PATIENT
  Age: 73 Year
  Sex: Female
  Weight: 61.69 kg

DRUGS (1)
  1. MUCINEX [Suspect]
     Indication: MULTIPLE ALLERGIES

REACTIONS (9)
  - Dizziness [None]
  - Abdominal discomfort [None]
  - Back pain [None]
  - Nausea [None]
  - Diarrhoea [None]
  - Headache [None]
  - Cough [None]
  - Fatigue [None]
  - Myalgia [None]
